FAERS Safety Report 7451082-4 (Version None)
Quarter: 2011Q2

REPORT INFORMATION
  Report Type: 
  Country: None (occurrence: None)
  Receive Date: 20110502
  Receipt Date: 20110427
  Transmission Date: 20111010
  Serious: Yes (Death)
  Sender: FDA-Public Use
  Company Number: CA-ROCHE-773789

PATIENT
  Age: 42 Year
  Sex: Male

DRUGS (6)
  1. CODEINE [Suspect]
     Route: 048
  2. HYDROXYZINE [Suspect]
     Route: 048
  3. BROMAZEPAM [Suspect]
     Route: 048
  4. DIAZEPAM [Suspect]
     Route: 048
  5. METHADONE [Suspect]
     Route: 048
  6. DIMENHYDRINATE [Suspect]
     Route: 048

REACTIONS (2)
  - TOXICITY TO VARIOUS AGENTS [None]
  - SUBSTANCE ABUSE [None]
